FAERS Safety Report 6032295-5 (Version None)
Quarter: 2009Q1

REPORT INFORMATION
  Report Type: 
  Country: None (occurrence: None)
  Receive Date: 20090109
  Receipt Date: 20090102
  Transmission Date: 20090719
  Serious: Yes (Hospitalization)
  Sender: FDA-Public Use
  Company Number: GB-RANBAXY-2009RR-20293

PATIENT
  Age: 61 Year
  Sex: Male

DRUGS (5)
  1. AMOXICILLIN + CLAVULANATE POTASSIUM [Suspect]
     Dosage: 625 MG, TID
     Route: 048
  2. PENICILLIN G [Suspect]
     Indication: LUNG DISORDER
     Dosage: 1.2 G, UNK
  3. CEFTRIAXONE [Concomitant]
  4. CIPROFLOXACIN [Concomitant]
  5. GENTAMICIN [Concomitant]

REACTIONS (7)
  - CARDIAC FAILURE [None]
  - CARDIAC MURMUR [None]
  - DRUG INEFFECTIVE [None]
  - DYSPNOEA [None]
  - ENDOCARDITIS [None]
  - PYREXIA [None]
  - STREPTOCOCCAL INFECTION [None]
